FAERS Safety Report 16311142 (Version 3)
Quarter: 2020Q4

REPORT INFORMATION
  Report Type: Spontaneous
  Country: US (occurrence: US)
  Receive Date: 20190514
  Receipt Date: 20201229
  Transmission Date: 20210113
  Serious: Yes (Hospitalization, Disabling, Other)
  Sender: FDA-Public Use
  Company Number: US-ASTRAZENECA-2019SE67485

PATIENT
  Age: 17362 Day
  Sex: Female
  Weight: 75.3 kg

DRUGS (81)
  1. PRILOSEC [Suspect]
     Active Substance: OMEPRAZOLE MAGNESIUM
     Indication: GASTROOESOPHAGEAL REFLUX DISEASE
     Route: 048
     Dates: start: 1992, end: 1999
  2. DOXYCYCLINE. [Concomitant]
     Active Substance: DOXYCYCLINE
     Indication: INFECTION
     Dates: start: 20160824, end: 20160924
  3. FUROSEMIDE. [Concomitant]
     Active Substance: FUROSEMIDE
  4. GENTAMICIN. [Concomitant]
     Active Substance: GENTAMICIN
  5. HUMALOG [Concomitant]
     Active Substance: INSULIN LISPRO
  6. AMIODARONE [Concomitant]
     Active Substance: AMIODARONE
  7. ATROPINE. [Concomitant]
     Active Substance: ATROPINE
  8. PHENERGAN [Concomitant]
     Active Substance: PROMETHAZINE HYDROCHLORIDE
  9. RINGERS SOLUTION [Concomitant]
     Active Substance: CALCIUM CHLORIDE\POTASSIUM CHLORIDE\SODIUM CHLORIDE
  10. METOPROLOL. [Concomitant]
     Active Substance: METOPROLOL
  11. TRIAMTERENE-HCTZ [Concomitant]
     Active Substance: HYDROCHLOROTHIAZIDE\TRIAMTERENE
  12. RABBIT. [Concomitant]
     Active Substance: RABBIT
  13. PRILOSEC [Suspect]
     Active Substance: OMEPRAZOLE MAGNESIUM
     Indication: GASTROOESOPHAGEAL REFLUX DISEASE
     Route: 048
     Dates: start: 20150709
  14. PEPCID [Concomitant]
     Active Substance: FAMOTIDINE
     Dates: start: 2013
  15. CLONIDINE. [Concomitant]
     Active Substance: CLONIDINE
  16. ERYTHROMYCIN. [Concomitant]
     Active Substance: ERYTHROMYCIN
  17. NIFEDIPINE. [Concomitant]
     Active Substance: NIFEDIPINE
  18. PENTAMIDINE [Concomitant]
     Active Substance: PENTAMIDINE
  19. DOCUSATE SODIUM. [Concomitant]
     Active Substance: DOCUSATE SODIUM
  20. LIDOCAINE. [Concomitant]
     Active Substance: LIDOCAINE
  21. PRILOSEC [Suspect]
     Active Substance: OMEPRAZOLE MAGNESIUM
     Indication: GASTROOESOPHAGEAL REFLUX DISEASE
     Dosage: OMEPRAZOLE
     Route: 065
     Dates: start: 1992, end: 1999
  22. PROTONIX [Suspect]
     Active Substance: PANTOPRAZOLE SODIUM
     Indication: GASTROOESOPHAGEAL REFLUX DISEASE
     Route: 048
     Dates: start: 20161209
  23. CIPROFLOXACIN. [Concomitant]
     Active Substance: CIPROFLOXACIN
     Indication: INFECTION
     Dates: start: 20160627, end: 20160904
  24. PEPCID [Concomitant]
     Active Substance: FAMOTIDINE
     Dates: start: 2012
  25. TAZTIA XT [Concomitant]
     Active Substance: DILTIAZEM HYDROCHLORIDE
  26. VALSARTAN. [Concomitant]
     Active Substance: VALSARTAN
  27. MYCOPHENOLATE [Concomitant]
     Active Substance: MYCOPHENOLIC ACID
  28. METHYLPREDNISOLONE. [Concomitant]
     Active Substance: METHYLPREDNISOLONE
  29. DEMEROL [Concomitant]
     Active Substance: MEPERIDINE HYDROCHLORIDE
  30. VERSED [Concomitant]
     Active Substance: MIDAZOLAM HYDROCHLORIDE
  31. SORBITOL. [Concomitant]
     Active Substance: SORBITOL
  32. PROTONIX [Suspect]
     Active Substance: PANTOPRAZOLE SODIUM
     Indication: GASTROOESOPHAGEAL REFLUX DISEASE
     Route: 065
     Dates: start: 2006, end: 2007
  33. AMOXICILLIN. [Concomitant]
     Active Substance: AMOXICILLIN
     Indication: INFECTION
     Dates: start: 20070707, end: 20070708
  34. VITAMIN D [Concomitant]
     Active Substance: VITAMIN D NOS
     Dates: start: 2007
  35. PEPCID [Concomitant]
     Active Substance: FAMOTIDINE
     Dates: start: 2018
  36. ACYCLOVIR. [Concomitant]
     Active Substance: ACYCLOVIR
  37. REGLAN [Concomitant]
     Active Substance: METOCLOPRAMIDE HYDROCHLORIDE
  38. SODIUM CHLORIDE. [Concomitant]
     Active Substance: SODIUM CHLORIDE
  39. GLUCOSE [Concomitant]
     Active Substance: DEXTROSE
  40. MAGNESIUM OXIDE. [Concomitant]
     Active Substance: MAGNESIUM OXIDE
  41. GLYCOLAX [Concomitant]
     Active Substance: POLYETHYLENE GLYCOL 3350
  42. TRAMADOL. [Concomitant]
     Active Substance: TRAMADOL
     Indication: MUSCLE SPASMS
     Dates: start: 20141105, end: 20141205
  43. TUMS [Concomitant]
     Active Substance: CALCIUM CARBONATE
     Dates: start: 2005, end: 2011
  44. CYCLOBENZAPRINE. [Concomitant]
     Active Substance: CYCLOBENZAPRINE
  45. CARISOPRODOL. [Concomitant]
     Active Substance: CARISOPRODOL
  46. ATORVASTATIN [Concomitant]
     Active Substance: ATORVASTATIN
  47. ZOFRAN [Concomitant]
     Active Substance: ONDANSETRON HYDROCHLORIDE
  48. HEPARIN [Concomitant]
     Active Substance: HEPARIN SODIUM
  49. ACETAMINOPHEN. [Concomitant]
     Active Substance: ACETAMINOPHEN
  50. PROTONIX [Suspect]
     Active Substance: PANTOPRAZOLE SODIUM
     Indication: GASTROOESOPHAGEAL REFLUX DISEASE
     Route: 065
  51. PEPCID [Concomitant]
     Active Substance: FAMOTIDINE
     Dates: start: 2015
  52. DOXYCYCLINE MONOHYDRATE [Concomitant]
     Active Substance: DOXYCYCLINE
  53. ALLOPURINOL. [Concomitant]
     Active Substance: ALLOPURINOL
  54. CALCIUM ACETATE. [Concomitant]
     Active Substance: CALCIUM ACETATE
  55. HYDROCODONE BITARTRATE AND ACETAMINOPHEN [Concomitant]
     Active Substance: ACETAMINOPHEN\HYDROCODONE BITARTRATE
  56. DOXAZOSIN [Concomitant]
     Active Substance: DOXAZOSIN MESYLATE
  57. LEVEMIR [Concomitant]
     Active Substance: INSULIN DETEMIR
  58. LEVAQUIN [Concomitant]
     Active Substance: LEVOFLOXACIN
  59. PREDNISONE. [Concomitant]
     Active Substance: PREDNISONE
  60. TACROLIMUS. [Concomitant]
     Active Substance: TACROLIMUS
  61. VALGANCICLOVIR. [Concomitant]
     Active Substance: VALGANCICLOVIR
  62. IOHEXOL [Concomitant]
     Active Substance: IOHEXOL
  63. MAGNESIUM SULFATE. [Concomitant]
     Active Substance: MAGNESIUM SULFATE
  64. PEPCID [Concomitant]
     Active Substance: FAMOTIDINE
     Dates: start: 2020
  65. MINOXIDIL. [Concomitant]
     Active Substance: MINOXIDIL
  66. CALCITRIOL. [Concomitant]
     Active Substance: CALCITRIOL
  67. POTASSIUM CHLORIDE. [Concomitant]
     Active Substance: POTASSIUM CHLORIDE
  68. FENTANYL. [Concomitant]
     Active Substance: FENTANYL
  69. OXYCODONE [Concomitant]
     Active Substance: OXYCODONE
  70. CETIRIZINE [Concomitant]
     Active Substance: CETIRIZINE HYDROCHLORIDE
  71. SODIUM BICARBONATE. [Concomitant]
     Active Substance: SODIUM BICARBONATE
  72. PRILOSEC [Suspect]
     Active Substance: OMEPRAZOLE MAGNESIUM
     Indication: GASTROOESOPHAGEAL REFLUX DISEASE
     Route: 048
  73. MAGNESIUM [Concomitant]
     Active Substance: MAGNESIUM
     Dates: start: 2007
  74. PEPCID [Concomitant]
     Active Substance: FAMOTIDINE
     Dates: start: 2005
  75. ENTRESTO [Concomitant]
     Active Substance: SACUBITRIL\VALSARTAN
  76. CARVEDILOL. [Concomitant]
     Active Substance: CARVEDILOL
  77. CLONAZEPAM. [Concomitant]
     Active Substance: CLONAZEPAM
  78. DILTIAZEM. [Concomitant]
     Active Substance: DILTIAZEM
  79. MORPHINE [Concomitant]
     Active Substance: MORPHINE
  80. NALOXONE [Concomitant]
     Active Substance: NALOXONE
  81. ROMAZICON [Concomitant]
     Active Substance: FLUMAZENIL

REACTIONS (9)
  - End stage renal disease [Not Recovered/Not Resolved]
  - Renal tubular necrosis [Unknown]
  - Hyperparathyroidism secondary [Unknown]
  - Tubulointerstitial nephritis [Unknown]
  - Gastrooesophageal reflux disease [Not Recovered/Not Resolved]
  - Chronic kidney disease [Not Recovered/Not Resolved]
  - Acute kidney injury [Unknown]
  - Renal failure [Unknown]
  - Nephrogenic anaemia [Unknown]

NARRATIVE: CASE EVENT DATE: 20060303
